FAERS Safety Report 10840342 (Version 1)
Quarter: 2015Q1

REPORT INFORMATION
  Report Type: Report from Study
  Country: US (occurrence: US)
  Receive Date: 20150220
  Receipt Date: 20150220
  Transmission Date: 20150721
  Serious: Yes (Hospitalization)
  Sender: FDA-Public Use
  Company Number: US-ABBVIE-14P-163-1237224-00

PATIENT
  Age: 32 Year
  Sex: Male

DRUGS (1)
  1. HUMIRA [Suspect]
     Active Substance: ADALIMUMAB
     Indication: COLITIS ULCERATIVE

REACTIONS (15)
  - Colitis ulcerative [Unknown]
  - Chest pain [Unknown]
  - Night sweats [Unknown]
  - Musculoskeletal pain [Recovering/Resolving]
  - Aphonia [Unknown]
  - Chills [Unknown]
  - Heart rate increased [Unknown]
  - Cough [Not Recovered/Not Resolved]
  - Pneumonia [Unknown]
  - Pyrexia [Unknown]
  - Stress [Unknown]
  - Meningitis toxoplasmal [Unknown]
  - Coccidioidomycosis [Unknown]
  - Headache [Unknown]
  - Pyrexia [Unknown]

NARRATIVE: CASE EVENT DATE: 201311
